FAERS Safety Report 4796799-5 (Version None)
Quarter: 2005Q3

REPORT INFORMATION
  Report Type: 
  Country: None (occurrence: None)
  Receive Date: 20050916
  Receipt Date: 20050706
  Transmission Date: 20060218
  Serious: Yes (Hospitalization, Other)
  Sender: FDA-Public Use
  Company Number: US-JNJFOC-20050504526

PATIENT
  Age: 26 Year
  Sex: Female
  Weight: 67.1324 kg

DRUGS (4)
  1. TOPAMAX [Suspect]
     Indication: CONVULSION
     Dosage: 100 MG, 2 IN 1 DAY, ORAL;  100 MG, 3 IN 1 DAY, ORAL;  25 MG, 2 IN 1 DAY, ORAL
     Route: 048
     Dates: end: 20050511
  2. TOPAMAX [Suspect]
     Indication: CONVULSION
     Dosage: 100 MG, 2 IN 1 DAY, ORAL;  100 MG, 3 IN 1 DAY, ORAL;  25 MG, 2 IN 1 DAY, ORAL
     Route: 048
     Dates: start: 20050221
  3. DEPAKOTE [Concomitant]
  4. KEPPRA [Concomitant]

REACTIONS (1)
  - PANCYTOPENIA [None]
